FAERS Safety Report 25449964 (Version 1)
Quarter: 2025Q2

REPORT INFORMATION
  Report Type: Report from Study
  Country: US (occurrence: US)
  Receive Date: 20250618
  Receipt Date: 20250618
  Transmission Date: 20250717
  Serious: Yes (Death, Life-Threatening, Hospitalization, Other)
  Sender: TAKEDA
  Company Number: US-TAKEDA-2024TUS023040AA

PATIENT
  Age: 50 Year
  Sex: Female
  Weight: 77 kg

DRUGS (28)
  1. HUMAN IMMUNOGLOBULIN G [Suspect]
     Active Substance: HUMAN IMMUNOGLOBULIN G
     Indication: Polyneuropathy
     Dosage: 60 GRAM, Q4WEEKS
     Dates: start: 20230828
  2. HUMAN IMMUNOGLOBULIN G [Suspect]
     Active Substance: HUMAN IMMUNOGLOBULIN G
     Dosage: 60 GRAM, Q6WEEKS
  3. EPINEPHRINE [Concomitant]
     Active Substance: EPINEPHRINE
  4. ACETAMINOPHEN [Concomitant]
     Active Substance: ACETAMINOPHEN
  5. GARLIC [Concomitant]
     Active Substance: GARLIC
  6. LEVOTHYROXINE SODIUM [Concomitant]
     Active Substance: LEVOTHYROXINE SODIUM
  7. XIIDRA [Concomitant]
     Active Substance: LIFITEGRAST
  8. OMEPRAZOLE [Concomitant]
     Active Substance: OMEPRAZOLE
  9. FOLIC ACID [Concomitant]
     Active Substance: FOLIC ACID
  10. ALLEGRA ALLERGY [Concomitant]
     Active Substance: FEXOFENADINE HYDROCHLORIDE
  11. POTASSIUM CHLORIDE [Concomitant]
     Active Substance: POTASSIUM CHLORIDE
  12. SODIUM CHLORIDE [Concomitant]
     Active Substance: SODIUM CHLORIDE
  13. CYANOCOBALAMIN [Concomitant]
     Active Substance: CYANOCOBALAMIN
  14. Artificial tears [Concomitant]
  15. MOMETASONE FUROATE [Concomitant]
     Active Substance: MOMETASONE FUROATE
  16. AMMONIUM LACTATE [Concomitant]
     Active Substance: AMMONIUM LACTATE
  17. GABAPENTIN [Concomitant]
     Active Substance: GABAPENTIN
  18. LIDOCAINE [Concomitant]
     Active Substance: LIDOCAINE
  19. HEPARIN [Concomitant]
     Active Substance: HEPARIN SODIUM
  20. Omega [Concomitant]
  21. AMITRIPTYLINE HYDROCHLORIDE [Concomitant]
     Active Substance: AMITRIPTYLINE HYDROCHLORIDE
  22. MAGNESIUM [Concomitant]
     Active Substance: MAGNESIUM
  23. ALPRAZOLAM [Concomitant]
     Active Substance: ALPRAZOLAM
  24. ZOLMITRIPTAN [Concomitant]
     Active Substance: ZOLMITRIPTAN
  25. COSENTYX [Concomitant]
     Active Substance: SECUKINUMAB
  26. DIPHENHYDRAMINE HYDROCHLORIDE [Concomitant]
     Active Substance: DIPHENHYDRAMINE HYDROCHLORIDE
  27. IBUPROFEN [Concomitant]
     Active Substance: IBUPROFEN
  28. DEXTROSE [Concomitant]
     Active Substance: DEXTROSE MONOHYDRATE

REACTIONS (7)
  - Transient ischaemic attack [Fatal]
  - Migraine [Unknown]
  - Bronchitis [Unknown]
  - Seasonal allergy [Unknown]
  - Product dose omission issue [Unknown]
  - Nausea [Unknown]
  - Headache [Unknown]

NARRATIVE: CASE EVENT DATE: 20250404
